FAERS Safety Report 13780303 (Version 3)
Quarter: 2018Q4

REPORT INFORMATION
  Report Type: Report from Study
  Country: None (occurrence: ES)
  Receive Date: 20170724
  Receipt Date: 20181122
  Transmission Date: 20190204
  Serious: No
  Sender: FDA-Public Use
  Company Number: ES-ABBVIE-17K-144-2041323-00

PATIENT
  Age: 76 Year
  Sex: Female

DRUGS (4)
  1. DUODOPA [Suspect]
     Active Substance: CARBIDOPA\LEVODOPA
     Indication: PARKINSON^S DISEASE
     Route: 050
     Dates: start: 20170117, end: 2017
  2. MIRAPEXIN [Suspect]
     Active Substance: PRAMIPEXOLE
     Indication: PRODUCT USED FOR UNKNOWN INDICATION
     Route: 065
  3. MIRAPEXIN [Concomitant]
     Active Substance: PRAMIPEXOLE
     Indication: PRODUCT USED FOR UNKNOWN INDICATION
  4. DUODOPA [Suspect]
     Active Substance: CARBIDOPA\LEVODOPA
     Dosage: MORNING DOSE WAS INCREASED IN 03 ML?CONTINUOUS DOSE WAS INCREASED IN 0.1 ML/H,
     Route: 050
     Dates: start: 2017

REACTIONS (20)
  - Freezing phenomenon [Not Recovered/Not Resolved]
  - Stoma site erythema [Unknown]
  - Dyskinesia [Not Recovered/Not Resolved]
  - Depression [Not Recovered/Not Resolved]
  - Dizziness [Not Recovered/Not Resolved]
  - Granuloma [Recovered/Resolved]
  - Motor dysfunction [Not Recovered/Not Resolved]
  - Paranoia [Unknown]
  - Tremor [Not Recovered/Not Resolved]
  - Fall [Not Recovered/Not Resolved]
  - Stoma site erythema [Recovered/Resolved]
  - Stoma site pain [Recovered/Resolved]
  - Speech disorder [Unknown]
  - Paranoia [Recovering/Resolving]
  - Mental disorder [Unknown]
  - Stoma site discharge [Recovered/Resolved]
  - On and off phenomenon [Unknown]
  - Depression [Unknown]
  - Nervousness [Unknown]
  - Stoma site oedema [Recovered/Resolved]

NARRATIVE: CASE EVENT DATE: 201702
